FAERS Safety Report 9761824 (Version 1)
Quarter: 2013Q4

REPORT INFORMATION
  Report Type: Spontaneous
  Country: US (occurrence: US)
  Receive Date: 20131216
  Receipt Date: 20131216
  Transmission Date: 20140711
  Serious: No
  Sender: FDA-Public Use
  Company Number: US-BIOGENIDEC-2013BI104990

PATIENT
  Age: 68 Year
  Sex: Male

DRUGS (5)
  1. TECFIDERA [Suspect]
     Indication: MULTIPLE SCLEROSIS
     Route: 048
     Dates: end: 20131021
  2. AMPYRA [Concomitant]
  3. PROVIGIL [Concomitant]
  4. VITAMIN C [Concomitant]
  5. OMEGA 3 [Concomitant]

REACTIONS (9)
  - Nervous system disorder [Unknown]
  - Dysphagia [Unknown]
  - Cognitive disorder [Unknown]
  - Disorientation [Unknown]
  - Amnesia [Unknown]
  - Constipation [Unknown]
  - Urinary tract disorder [Unknown]
  - Weight decreased [Unknown]
  - Multiple sclerosis relapse [Unknown]
